FAERS Safety Report 12386786 (Version 2)
Quarter: 2016Q2

REPORT INFORMATION
  Report Type: Report from Study
  Country: PR (occurrence: PR)
  Receive Date: 20160519
  Receipt Date: 20160609
  Transmission Date: 20160815
  Serious: Yes (Hospitalization)
  Sender: FDA-Public Use
  Company Number: PR-ABBVIE-16P-131-1628658-00

PATIENT
  Age: 60 Year
  Sex: Male
  Weight: 106.24 kg

DRUGS (7)
  1. LASIX [Concomitant]
     Active Substance: FUROSEMIDE
     Indication: HYPERTENSION
  2. RIBAVIRIN. [Concomitant]
     Active Substance: RIBAVIRIN
     Indication: CHRONIC HEPATITIS C
     Route: 048
     Dates: start: 20160409
  3. NEURONTIN [Concomitant]
     Active Substance: GABAPENTIN
     Indication: DIABETIC NEUROPATHY
  4. VIEKIRA PAK [Suspect]
     Active Substance: DASABUVIR\OMBITASVIR\PARITAPREVIR\RITONAVIR
     Indication: CHRONIC HEPATITIS C
     Route: 048
     Dates: start: 20160409
  5. HUMALOG [Concomitant]
     Active Substance: INSULIN LISPRO
     Indication: DIABETES MELLITUS
  6. METOPROLOL. [Concomitant]
     Active Substance: METOPROLOL
     Indication: HYPERTENSION
  7. ALLOPURINOL. [Concomitant]
     Active Substance: ALLOPURINOL
     Indication: GOUT

REACTIONS (6)
  - Asthenia [Not Recovered/Not Resolved]
  - Nausea [Not Recovered/Not Resolved]
  - Blood potassium increased [Not Recovered/Not Resolved]
  - Dizziness [Not Recovered/Not Resolved]
  - Blood potassium decreased [Not Recovered/Not Resolved]
  - Haemoglobin decreased [Not Recovered/Not Resolved]

NARRATIVE: CASE EVENT DATE: 2016
